FAERS Safety Report 7860256-X (Version None)
Quarter: 2011Q4

REPORT INFORMATION
  Report Type: 
  Country: None (occurrence: None)
  Receive Date: 20111027
  Receipt Date: 20111014
  Transmission Date: 20120403
  Serious: Yes (Hospitalization)
  Sender: FDA-Public Use
  Company Number: US-ROCHE-774292

PATIENT
  Sex: Male
  Weight: 64.8 kg

DRUGS (4)
  1. PHENYTOIN [Suspect]
     Indication: PRODUCT USED FOR UNKNOWN INDICATION
     Route: 065
  2. CLONAZEPAM [Suspect]
     Indication: PRODUCT USED FOR UNKNOWN INDICATION
     Route: 065
  3. QUETIAPINE FUMARATE [Suspect]
     Indication: PRODUCT USED FOR UNKNOWN INDICATION
     Route: 065
  4. TEMOZOLOMIDE [Suspect]
     Indication: GLIOBLASTOMA MULTIFORME
     Dosage: ADJUVANT CYCLE 2 ON 03/27/2011 FOR 5 DAY CYCLE AT 280MG PER DAY. DRUG WITHDRAWN
     Route: 048

REACTIONS (3)
  - COGNITIVE DISORDER [None]
  - DEPRESSION [None]
  - DIPLOPIA [None]
